FAERS Safety Report 10150344 (Version 1)
Quarter: 2014Q2

REPORT INFORMATION
  Report Type: Spontaneous
  Country: CA (occurrence: CA)
  Receive Date: 20140502
  Receipt Date: 20140502
  Transmission Date: 20141212
  Serious: Yes (Hospitalization, Other)
  Sender: FDA-Public Use
  Company Number: PHHY2014CA050364

PATIENT
  Age: 68 Year
  Sex: Female

DRUGS (7)
  1. METHOTREXATE [Suspect]
     Indication: CROHN^S DISEASE
     Dosage: 25 MG/WEEK
     Route: 030
  2. SULFAMETHOXAZOLE+TRIMETHOPRIM [Suspect]
     Indication: ANTIFUNGAL PROPHYLAXIS
  3. PREDNISONE [Concomitant]
     Dosage: 15 MG, UNK
     Route: 048
  4. FOLIC ACID [Concomitant]
     Dosage: 25 MG/WEEK
  5. FOLIC ACID [Concomitant]
     Dosage: 1 MG DAILY
  6. ALENDRONATE [Concomitant]
     Dosage: 10 MG DAILY
  7. VITAMIN D [Concomitant]
     Dosage: 1000 IU DAILY

REACTIONS (14)
  - Crohn^s disease [Unknown]
  - Abdominal pain [Unknown]
  - Frequent bowel movements [Unknown]
  - Diarrhoea [Recovered/Resolved]
  - Stomatitis [Unknown]
  - Dysphagia [Unknown]
  - Oral pain [Unknown]
  - Nausea [Unknown]
  - Vomiting [Unknown]
  - Bone marrow failure [Recovered/Resolved]
  - Pancytopenia [Recovered/Resolved]
  - Febrile neutropenia [Recovered/Resolved]
  - Nephropathy toxic [Recovered/Resolved]
  - Drug interaction [Unknown]
